FAERS Safety Report 7252380-X (Version None)
Quarter: 2011Q1

REPORT INFORMATION
  Report Type: 
  Country: None (occurrence: None)
  Receive Date: 20110129
  Receipt Date: 20100112
  Transmission Date: 20110831
  Serious: No
  Sender: FDA-Public Use
  Company Number: US-ABBOTT-10P-163-0619567-00

PATIENT
  Sex: Female

DRUGS (2)
  1. HUMIRA [Suspect]
     Indication: PSORIASIS
     Dosage: THE PATIENT PLANS TO CONTINUE 40MG EVERY OTHER WEEK
     Route: 058
     Dates: start: 20090101, end: 20090101
  2. HUMIRA [Suspect]
     Dosage: SECOND DOSE ONE WEEK LATER
     Route: 058
     Dates: start: 20091225, end: 20091225

REACTIONS (1)
  - INJECTION SITE ERYTHEMA [None]
